FAERS Safety Report 6654603-4 (Version None)
Quarter: 2010Q1

REPORT INFORMATION
  Report Type: 
  Country: None (occurrence: None)
  Receive Date: 20100326
  Receipt Date: 20100319
  Transmission Date: 20100710
  Serious: Yes (Other)
  Sender: FDA-Public Use
  Company Number: CA-GENENTECH-296996

PATIENT
  Sex: Male

DRUGS (7)
  1. RITUXAN [Suspect]
     Indication: RHEUMATOID ARTHRITIS
     Dosage: 1000 MG, UNK
     Route: 042
     Dates: start: 20090812, end: 20090831
  2. PREDNISONE [Concomitant]
     Indication: IDIOPATHIC THROMBOCYTOPENIC PURPURA
     Dosage: 12.5 MG, UNK
     Route: 048
     Dates: start: 20070801
  3. PREDNISONE [Concomitant]
     Indication: RHEUMATOID ARTHRITIS
  4. ELTROXIN [Concomitant]
     Indication: HYPOTHYROIDISM
     Dosage: 0.1 MG, UNK
     Route: 048
  5. KETOPROFEN [Concomitant]
     Indication: RHEUMATOID ARTHRITIS
     Dosage: 100 MG, UNK
     Route: 048
  6. OMEPRAZOLE [Concomitant]
     Indication: PROPHYLAXIS
     Dosage: 20 MG, UNK
     Route: 048
  7. ARAVA [Concomitant]
     Indication: RHEUMATOID ARTHRITIS
     Dosage: 30 MG, UNK
     Route: 048

REACTIONS (2)
  - IDIOPATHIC THROMBOCYTOPENIC PURPURA [None]
  - NASOPHARYNGITIS [None]
